FAERS Safety Report 13075643 (Version 1)
Quarter: 2016Q4

REPORT INFORMATION
  Report Type: Report from Study
  Country: AU (occurrence: AU)
  Receive Date: 20161230
  Receipt Date: 20161230
  Transmission Date: 20170207
  Serious: Yes (Other)
  Sender: FDA-Public Use
  Company Number: AU-REGENERON PHARMACEUTICALS, INC.-2016-25692

PATIENT

DRUGS (4)
  1. BETADINE [Suspect]
     Active Substance: POVIDONE-IODINE
     Indication: INFECTION PROPHYLAXIS
  2. EYLEA [Suspect]
     Active Substance: AFLIBERCEPT
     Dosage: 2 MG, EVERY 7 WEEKS
     Route: 031
     Dates: start: 201603
  3. EYLEA [Suspect]
     Active Substance: AFLIBERCEPT
     Indication: NEOVASCULAR AGE-RELATED MACULAR DEGENERATION
     Dosage: 2 MG, Q4WK
     Route: 031
     Dates: start: 201603
  4. CHLORHEXIDINE [Concomitant]
     Active Substance: CHLORHEXIDINE
     Indication: INFECTION PROPHYLAXIS

REACTIONS (5)
  - Open angle glaucoma [Recovered/Resolved]
  - Discomfort [Recovered/Resolved]
  - Vomiting [Recovered/Resolved with Sequelae]
  - Eye pain [Recovered/Resolved]
  - Adverse drug reaction [Recovered/Resolved]
